FAERS Safety Report 5472144-7 (Version None)
Quarter: 2007Q3

REPORT INFORMATION
  Report Type: 
  Country: None (occurrence: None)
  Receive Date: 20070928
  Receipt Date: 20070920
  Transmission Date: 20080115
  Serious: Yes (Hospitalization)
  Sender: FDA-Public Use
  Company Number: FR-GILEAD-2007-0013479

PATIENT
  Age: 45 Year
  Sex: Male

DRUGS (2)
  1. VISTIDE [Suspect]
     Route: 042
     Dates: start: 20070616, end: 20070617
  2. PROBENECID [Concomitant]
     Dates: start: 20070616, end: 20070617

REACTIONS (3)
  - HYPOKALAEMIA [None]
  - HYPOMAGNESAEMIA [None]
  - PROTEINURIA [None]
